FAERS Safety Report 5788737-3 (Version None)
Quarter: 2008Q2

REPORT INFORMATION
  Report Type: 
  Country: None (occurrence: None)
  Receive Date: 20080626
  Receipt Date: 20080617
  Transmission Date: 20081010
  Serious: Yes (Hospitalization, Other)
  Sender: FDA-Public Use
  Company Number: US-ROCHE-467567

PATIENT
  Sex: Male
  Weight: 80.3 kg

DRUGS (1)
  1. ACCUTANE [Suspect]
     Route: 048
     Dates: start: 19991119, end: 20000417

REACTIONS (15)
  - ANAEMIA [None]
  - ANXIETY [None]
  - COLITIS [None]
  - COLITIS ULCERATIVE [None]
  - COUGH [None]
  - DEPRESSION [None]
  - DERMATOMYOSITIS [None]
  - ENTERITIS [None]
  - EPISTAXIS [None]
  - HEADACHE [None]
  - INFLAMMATORY BOWEL DISEASE [None]
  - IRRITABLE BOWEL SYNDROME [None]
  - MOOD ALTERED [None]
  - PANCREATITIS [None]
  - XEROSIS [None]
